FAERS Safety Report 11174176 (Version 1)
Quarter: 2015Q2

REPORT INFORMATION
  Report Type: Spontaneous
  Country: US (occurrence: None)
  Receive Date: 20150608
  Receipt Date: 20150608
  Transmission Date: 20150821
  Serious: No
  Sender: FDA-Public Use
  Company Number: None

PATIENT
  Age: 42 Year
  Sex: Male

DRUGS (1)
  1. PLEGRIDY [Suspect]
     Active Substance: PEGINTERFERON BETA-1A
     Indication: MULTIPLE SCLEROSIS
     Dosage: 125 MCG, EVERY 14 DAYS
     Route: 058
     Dates: start: 20150423

REACTIONS (5)
  - Weight decreased [None]
  - Dysgraphia [None]
  - Abasia [None]
  - Muscular weakness [None]
  - Decreased appetite [None]

NARRATIVE: CASE EVENT DATE: 20150501
